FAERS Safety Report 4831663-4 (Version None)
Quarter: 2005Q4

REPORT INFORMATION
  Report Type: 
  Country: None (occurrence: None)
  Receive Date: 20051116
  Receipt Date: 20051031
  Transmission Date: 20060501
  Serious: Yes (Hospitalization, Other)
  Sender: FDA-Public Use
  Company Number: F03200500120

PATIENT
  Age: 54 Year
  Sex: Female

DRUGS (4)
  1. ELOXATIN [Suspect]
     Indication: RECTAL CANCER
     Dosage: INTRAVENOUS NOS
     Route: 042
  2. CETUXIMAB - SOLUTION - 250 MG/M2 [Suspect]
     Indication: RECTAL CANCER
     Dosage: 250 MG/M2 1/WEEK - INTRAVENOUS NOS
     Route: 042
     Dates: start: 20050815
  3. CAPECITABINE - TABLET [Suspect]
     Indication: RECTAL CANCER
     Dosage: 1500 MG TWICE PER DAY MONDAY THROUGH FRIDAY - ORAL
     Route: 048
     Dates: start: 20050815
  4. RADIATION THERAPY [Concomitant]

REACTIONS (3)
  - DEHYDRATION [None]
  - DIARRHOEA [None]
  - PAIN [None]
